APPROVED DRUG PRODUCT: RETROVIR
Active Ingredient: ZIDOVUDINE
Strength: 10MG/ML
Dosage Form/Route: INJECTABLE;INJECTION
Application: N019951 | Product #001
Applicant: VIIV HEALTHCARE CO
Approved: Feb 2, 1990 | RLD: Yes | RS: Yes | Type: RX